FAERS Safety Report 10039761 (Version 2)
Quarter: 2014Q2

REPORT INFORMATION
  Report Type: Spontaneous
  Country: US (occurrence: US)
  Receive Date: 20140326
  Receipt Date: 20140626
  Transmission Date: 20141212
  Serious: No
  Sender: FDA-Public Use
  Company Number: US-TEVA-467652USA

PATIENT
  Sex: Female

DRUGS (12)
  1. QVAR [Suspect]
     Route: 055
  2. NORCO [Concomitant]
     Dosage: 10/325 MG
  3. MECLIZINE [Concomitant]
  4. METOPROLOL TARTRATE [Concomitant]
  5. LOMOTIL [Concomitant]
  6. ROPINIROLE [Concomitant]
  7. ZANTAC [Concomitant]
  8. SULFASALAZINE [Concomitant]
  9. NEURONTIN [Concomitant]
  10. ALBUTEROL [Concomitant]
  11. ALBUTEROL [Concomitant]
  12. PLAQUENIL [Concomitant]

REACTIONS (2)
  - Wheezing [Not Recovered/Not Resolved]
  - Asthma [Unknown]
